FAERS Safety Report 23696908 (Version 1)
Quarter: 2024Q2

REPORT INFORMATION
  Report Type: Spontaneous
  Country: SY (occurrence: SY)
  Receive Date: 20240402
  Receipt Date: 20240402
  Transmission Date: 20240715
  Serious: Yes (Other)
  Sender: FDA-Public Use
  Company Number: SY-GTI-000211

PATIENT
  Age: 7 Month
  Sex: Female

DRUGS (4)
  1. PREDNISONE [Suspect]
     Active Substance: PREDNISONE
     Indication: Inflammatory bowel disease
     Route: 048
  2. MESALAMINE [Suspect]
     Active Substance: MESALAMINE
     Indication: Inflammatory bowel disease
     Route: 065
  3. METRONIDAZOLE [Suspect]
     Active Substance: METRONIDAZOLE
     Indication: Inflammatory bowel disease
     Route: 065
  4. ADALIMUMAB [Suspect]
     Active Substance: ADALIMUMAB\ISOPROPYL ALCOHOL
     Indication: Inflammatory bowel disease
     Route: 065

REACTIONS (7)
  - Disease recurrence [Recovered/Resolved]
  - Inflammatory bowel disease [Recovered/Resolved]
  - Diarrhoea haemorrhagic [Recovered/Resolved]
  - Large intestinal stenosis [Recovered/Resolved]
  - Disease progression [Recovered/Resolved]
  - Vomiting [Recovered/Resolved]
  - Therapy non-responder [Unknown]
